FAERS Safety Report 8607240-6 (Version None)
Quarter: 2012Q3

REPORT INFORMATION
  Report Type: 
  Country: None (occurrence: None)
  Receive Date: 20120821
  Receipt Date: 20120814
  Transmission Date: 20120928
  Serious: No
  Sender: FDA-Public Use
  Company Number: US-BIOGENIDEC-2012BI031588

PATIENT
  Sex: Female

DRUGS (3)
  1. AVONEX [Suspect]
     Route: 030
     Dates: start: 20100601
  2. AVONEX [Suspect]
     Route: 030
     Dates: start: 20080529, end: 20080819
  3. AVONEX [Suspect]
     Indication: MULTIPLE SCLEROSIS
     Route: 030
     Dates: start: 19970901, end: 20000101

REACTIONS (4)
  - DYSPNOEA [None]
  - DYSARTHRIA [None]
  - FALL [None]
  - DYSSTASIA [None]
